FAERS Safety Report 4392630-0 (Version None)
Quarter: 2004Q3

REPORT INFORMATION
  Report Type: 
  Country: None (occurrence: None)
  Receive Date: 20040701
  Receipt Date: 20040621
  Transmission Date: 20050211
  Serious: Yes (Death)
  Sender: FDA-Public Use
  Company Number: FABR-10654

PATIENT
  Age: 48 Year
  Sex: Male
  Weight: 86.1834 kg

DRUGS (2)
  1. FABRAZYME [Suspect]
     Indication: FABRY'S DISEASE
     Dosage: 80 MG ONCE IV
     Route: 042
     Dates: start: 20040611, end: 20040611
  2. PAXIL [Concomitant]

REACTIONS (4)
  - COMPLETED SUICIDE [None]
  - FATIGUE [None]
  - GUN SHOT WOUND [None]
  - INFUSION RELATED REACTION [None]
